FAERS Safety Report 22602427 (Version 1)
Quarter: 2023Q2

REPORT INFORMATION
  Report Type: Spontaneous
  Country: US (occurrence: US)
  Receive Date: 20230614
  Receipt Date: 20230614
  Transmission Date: 20230721
  Serious: No
  Sender: FDA-Public Use
  Company Number: US-SA-SAC20230613000250

PATIENT
  Sex: Female
  Weight: 106.59 kg

DRUGS (10)
  1. DUPIXENT [Suspect]
     Active Substance: DUPILUMAB
     Indication: Dermatitis atopic
     Dosage: 300 MG, QOW
     Route: 058
  2. ALBUTEROL SULFATE [Concomitant]
     Active Substance: ALBUTEROL SULFATE
  3. CORTEF [Concomitant]
     Active Substance: HYDROCORTISONE
  4. PYRIDOXAL PHOSPHATE ANHYDROUS [Concomitant]
     Active Substance: PYRIDOXAL PHOSPHATE ANHYDROUS
  5. QVAR REDIHALER [Concomitant]
     Active Substance: BECLOMETHASONE DIPROPIONATE
  6. SELENOMETHIONINE [Concomitant]
     Active Substance: SELENOMETHIONINE
  7. RETINOL [Concomitant]
     Active Substance: RETINOL
  8. ZINC PICOLINATE [Concomitant]
     Active Substance: ZINC PICOLINATE
  9. MOLYBDENUM [Concomitant]
     Active Substance: MOLYBDENUM
  10. VITAMIN D NOS [Concomitant]
     Active Substance: VITAMIN D NOS

REACTIONS (1)
  - Pruritus [Unknown]
